FAERS Safety Report 17182346 (Version 2)
Quarter: 2021Q3

REPORT INFORMATION
  Report Type: Spontaneous
  Country: CA (occurrence: CA)
  Receive Date: 20191220
  Receipt Date: 20210805
  Transmission Date: 20211014
  Serious: Yes (Life-Threatening)
  Sender: FDA-Public Use
  Company Number: CA-ROCHE-2500297

PATIENT
  Age: 34 Year
  Sex: Male
  Weight: 59.02 kg

DRUGS (10)
  1. CHAMOMILE [Concomitant]
     Active Substance: CHAMOMILE
  2. TYROSINE [Concomitant]
     Active Substance: TYROSINE
  3. PHENYLALANINE [Concomitant]
     Active Substance: PHENYLALANINE
  4. RIVOTRIL [Suspect]
     Active Substance: CLONAZEPAM
     Indication: INSOMNIA
     Route: 065
  5. MELATONIN [Concomitant]
     Active Substance: MELATONIN
  6. BENZOE [Concomitant]
  7. KAVA [Concomitant]
     Active Substance: PIPER METHYSTICUM ROOT
  8. TRYPTOPHAN [Concomitant]
     Active Substance: TRYPTOPHAN
  9. LEMON BALM [Concomitant]
     Active Substance: HERBALS\MELISSA OFFICINALIS
  10. GLYCINE. [Concomitant]
     Active Substance: GLYCINE

REACTIONS (18)
  - Flatulence [Recovering/Resolving]
  - Salivary hypersecretion [Recovering/Resolving]
  - Weight decreased [Recovering/Resolving]
  - Food allergy [Recovering/Resolving]
  - Insomnia [Recovering/Resolving]
  - Decreased appetite [Recovering/Resolving]
  - Fatigue [Recovering/Resolving]
  - Withdrawal syndrome [Recovering/Resolving]
  - Gastrointestinal disorder [Recovering/Resolving]
  - Feeling abnormal [Recovering/Resolving]
  - Illness anxiety disorder [Recovering/Resolving]
  - Abdominal distension [Recovering/Resolving]
  - Drug intolerance [Recovering/Resolving]
  - Paraesthesia [Recovering/Resolving]
  - Anxiety [Recovering/Resolving]
  - Cognitive disorder [Recovering/Resolving]
  - Constipation [Recovering/Resolving]
  - Memory impairment [Recovering/Resolving]
